FAERS Safety Report 13936317 (Version 1)
Quarter: 2017Q3

REPORT INFORMATION
  Report Type: Spontaneous
  Country: US (occurrence: None)
  Receive Date: 20170905
  Receipt Date: 20170905
  Transmission Date: 20171127
  Serious: Yes (Hospitalization)
  Sender: FDA-Public Use
  Company Number: None

PATIENT
  Age: 21 Year
  Sex: Female

DRUGS (35)
  1. SPIRNOLACTINE [Concomitant]
  2. CLONIDINE. [Concomitant]
     Active Substance: CLONIDINE
  3. ONDANSETRON [Concomitant]
     Active Substance: ONDANSETRON
  4. CIPRO [Concomitant]
     Active Substance: CIPROFLOXACIN HYDROCHLORIDE
  5. SERTRALINE [Concomitant]
     Active Substance: SERTRALINE HYDROCHLORIDE
  6. ADVAIR HFA [Concomitant]
     Active Substance: FLUTICASONE PROPIONATE\SALMETEROL XINAFOATE
  7. FLUCONAZOLE. [Concomitant]
     Active Substance: FLUCONAZOLE
  8. MICROGESTIN [Concomitant]
     Active Substance: ETHINYL ESTRADIOL\NORETHINDRONE ACETATE
  9. APAP/CODEINE [Concomitant]
     Active Substance: ACETAMINOPHEN\CODEINE PHOSPHATE
  10. LIDOCAINE. [Concomitant]
     Active Substance: LIDOCAINE
  11. LINEZOLID. [Suspect]
     Active Substance: LINEZOLID
  12. CYPROHEPTADINE. [Concomitant]
     Active Substance: CYPROHEPTADINE
  13. HYPERSAL NEB [Concomitant]
  14. ALBUTEROL. [Concomitant]
     Active Substance: ALBUTEROL
  15. HYDRO/APAP [Concomitant]
     Active Substance: ACETAMINOPHEN\HYDROCODONE
  16. SERTRALINE [Concomitant]
     Active Substance: SERTRALINE HYDROCHLORIDE
  17. CHLORPHEX GLUC [Concomitant]
  18. POT CL [Concomitant]
  19. COLISTMETHATE [Concomitant]
     Active Substance: COLISTIMETHATE SODIUM
  20. TOBRAMYCIN 300MG/5ML VIAL [Suspect]
     Active Substance: TOBRAMYCIN
     Indication: CYSTIC FIBROSIS
     Dosage: 1 VIAL VIA NEB TWICE DAILY, EVERY 3RD MONTH, VIA NEBULIZER
     Dates: start: 20170825
  21. SODIUM CHLOR [Concomitant]
  22. HYDROCHL [Concomitant]
  23. HYDRO/APAP [Concomitant]
     Active Substance: ACETAMINOPHEN\HYDROCODONE
  24. MEPHYTON [Concomitant]
     Active Substance: PHYTONADIONE
  25. ESOMER MAG [Concomitant]
  26. AMILORIDE [Concomitant]
     Active Substance: AMILORIDE
  27. TRAMADOL. [Concomitant]
     Active Substance: TRAMADOL
  28. ZOLPIDEM [Concomitant]
     Active Substance: ZOLPIDEM\ZOLPIDEM TARTRATE
  29. ALENDRONATE [Concomitant]
     Active Substance: ALENDRONATE SODIUM
  30. VENTOLIN HFA [Concomitant]
     Active Substance: ALBUTEROL SULFATE
  31. MAG OX [Concomitant]
     Active Substance: MAGNESIUM OXIDE
  32. DRONABINOL. [Concomitant]
     Active Substance: DRONABINOL
  33. MORPHINE SULF [Concomitant]
     Active Substance: MORPHINE SULFATE
  34. PREDNISONE. [Concomitant]
     Active Substance: PREDNISONE
  35. URSODIOL. [Concomitant]
     Active Substance: URSODIOL

REACTIONS (1)
  - Hospitalisation [None]
